FAERS Safety Report 6421206-6 (Version None)
Quarter: 2009Q4

REPORT INFORMATION
  Report Type: 
  Country: None (occurrence: None)
  Receive Date: 20091030
  Receipt Date: 20091026
  Transmission Date: 20100525
  Serious: Yes (Death)
  Sender: FDA-Public Use
  Company Number: BR-ASTRAZENECA-2009SE23038

PATIENT
  Age: 75 Year
  Sex: Female

DRUGS (1)
  1. ATACAND HCT [Suspect]
     Dosage: 16/12.5 MCG
     Route: 048

REACTIONS (1)
  - DEATH [None]
